FAERS Safety Report 5009752-3 (Version None)
Quarter: 2006Q2

REPORT INFORMATION
  Report Type: 
  Country: None (occurrence: None)
  Receive Date: 20060524
  Receipt Date: 20060309
  Transmission Date: 20061013
  Serious: Yes (Hospitalization, Disabling)
  Sender: FDA-Public Use
  Company Number: US-ROCHE-439866

PATIENT
  Age: 50 Year
  Sex: Male
  Weight: 66.2 kg

DRUGS (4)
  1. PEGASYS [Suspect]
     Dosage: ADMINISTERED Q WEEK.
     Route: 058
     Dates: start: 20060119, end: 20060216
  2. COPEGUS [Suspect]
     Route: 048
     Dates: start: 20060119, end: 20060216
  3. ZOLOFT [Concomitant]
     Indication: DEPRESSION
     Route: 048
     Dates: start: 20051215, end: 20060216
  4. SEROQUEL [Concomitant]
     Indication: INSOMNIA
     Route: 048

REACTIONS (3)
  - CONVULSION [None]
  - FALL [None]
  - INTERVERTEBRAL DISC PROTRUSION [None]
